FAERS Safety Report 5578364-5 (Version None)
Quarter: 2007Q4

REPORT INFORMATION
  Report Type: 
  Country: None (occurrence: None)
  Receive Date: 20071231
  Receipt Date: 20071220
  Transmission Date: 20080405
  Serious: Yes (Death)
  Sender: FDA-Public Use
  Company Number: DE-GENENTECH-249669

PATIENT
  Sex: Male

DRUGS (1)
  1. MABTHERA [Suspect]
     Indication: RHEUMATOID ARTHRITIS
     Dosage: 1 G, UNK
     Dates: start: 20070131, end: 20070131

REACTIONS (3)
  - MULTIMORBIDITY [None]
  - PERITONEAL CARCINOMA [None]
  - RETROPERITONEAL NEOPLASM [None]
